FAERS Safety Report 8911360 (Version 1)
Quarter: 2012Q4

REPORT INFORMATION
  Report Type: 
  Country: US (occurrence: US)
  Receive Date: 20121116
  Receipt Date: 20121116
  Transmission Date: 20130627
  Serious: No
  Sender: FDA-Public Use
  Company Number: US-GLAXOSMITHKLINE-A0998089A

PATIENT
  Sex: Male

DRUGS (1)
  1. VOTRIENT [Suspect]
     Route: 048

REACTIONS (8)
  - Glossodynia [Unknown]
  - Glossodynia [Unknown]
  - Acne [Unknown]
  - Glossodynia [Unknown]
  - Diarrhoea [Unknown]
  - Alopecia [Unknown]
  - Fatigue [Unknown]
  - Blood blister [Unknown]
